FAERS Safety Report 5068827-3 (Version None)
Quarter: 2006Q3

REPORT INFORMATION
  Report Type: 
  Country: None (occurrence: None)
  Receive Date: 20060802
  Receipt Date: 20060424
  Transmission Date: 20061208
  Serious: No
  Sender: FDA-Public Use
  Company Number: US-BRISTOL-MYERS SQUIBB COMPANY-13354766

PATIENT
  Sex: Male

DRUGS (2)
  1. COUMADIN [Suspect]
     Dosage: DURATION: 2 YEARS
  2. VERAPAMIL [Concomitant]

REACTIONS (3)
  - CHILLS [None]
  - PARAESTHESIA [None]
  - PYREXIA [None]
